FAERS Safety Report 6106518-8 (Version None)
Quarter: 2009Q1

REPORT INFORMATION
  Report Type: 
  Country: None (occurrence: None)
  Receive Date: 20090304
  Receipt Date: 20090217
  Transmission Date: 20090719
  Serious: Yes (Death)
  Sender: FDA-Public Use
  Company Number: 2009000007

PATIENT
  Sex: Female
  Weight: 92.9874 kg

DRUGS (7)
  1. ERLOTINIB       (ERLOTINIB) [Suspect]
     Indication: NON-SMALL CELL LUNG CANCER
     Dosage: 150 MG, ORAL
     Route: 048
     Dates: start: 20081202, end: 20081226
  2. SORAFENIB / PLACEBO [Suspect]
     Indication: NON-SMALL CELL LUNG CANCER
     Dosage: 800 MG, ORAL
     Route: 048
     Dates: start: 20081202, end: 20081226
  3. COMPLETE MULTIVITAMINS   (MULTIVITAMINS) [Concomitant]
  4. ACTOS [Concomitant]
  5. LOW DOSE ASA (ACETYLSALICYLIC ACID) [Concomitant]
  6. ZETIA [Concomitant]
  7. VITAMIN B12 [Concomitant]

REACTIONS (14)
  - ASCITES [None]
  - ASTHENIA [None]
  - BLOOD PRESSURE DECREASED [None]
  - CAROTID ARTERY DISEASE [None]
  - DEPRESSED LEVEL OF CONSCIOUSNESS [None]
  - GENERAL PHYSICAL HEALTH DETERIORATION [None]
  - LUNG NEOPLASM MALIGNANT [None]
  - MALIGNANT NEOPLASM PROGRESSION [None]
  - METASTASES TO LIVER [None]
  - NO THERAPEUTIC RESPONSE [None]
  - OEDEMA [None]
  - PAIN [None]
  - SPUTUM DISCOLOURED [None]
  - TYPE 2 DIABETES MELLITUS [None]
